FAERS Safety Report 11074072 (Version 1)
Quarter: 2015Q2

REPORT INFORMATION
  Report Type: Spontaneous
  Country: US (occurrence: US)
  Receive Date: 20150429
  Receipt Date: 20150429
  Transmission Date: 20150821
  Serious: Yes (Hospitalization)
  Sender: FDA-Public Use
  Company Number: US-AUROBINDO-AUR-APL-2015-03637

PATIENT
  Age: 55 Year
  Sex: Male

DRUGS (6)
  1. MIDAZOLAM [Suspect]
     Active Substance: MIDAZOLAM\MIDAZOLAM HYDROCHLORIDE
     Indication: AGITATION
     Dosage: UNK
     Route: 065
  2. HYDROCHLOROTHIAZIDE 12.5 MG, HERITAGE PHARMACY [Suspect]
     Active Substance: HYDROCHLOROTHIAZIDE
     Indication: HYPERTENSION
     Dosage: 12.5 MG, DAILY
     Route: 048
  3. MIDAZOLAM [Suspect]
     Active Substance: MIDAZOLAM\MIDAZOLAM HYDROCHLORIDE
     Indication: TACHYPNOEA
  4. CHLORDIAZEPOXIDE [Suspect]
     Active Substance: CHLORDIAZEPOXIDE
     Indication: PROPHYLAXIS
     Dosage: UNK
     Route: 048
  5. LORAZEPAM. [Suspect]
     Active Substance: LORAZEPAM
     Indication: ALCOHOL WITHDRAWAL SYNDROME
     Dosage: UNK, AS NECESSARY
     Route: 042
  6. MIDAZOLAM [Suspect]
     Active Substance: MIDAZOLAM\MIDAZOLAM HYDROCHLORIDE
     Indication: TACHYCARDIA

REACTIONS (13)
  - Blood pressure increased [Recovered/Resolved]
  - Cardiac ventricular disorder [Recovered/Resolved]
  - Delirium tremens [Unknown]
  - Oxygen saturation decreased [Recovered/Resolved]
  - Blood phosphorus decreased [Recovered/Resolved]
  - Hypovolaemic shock [Recovered/Resolved]
  - Heart rate increased [Recovered/Resolved]
  - Septic shock [Unknown]
  - Hypotension [Not Recovered/Not Resolved]
  - Memory impairment [Unknown]
  - Tremor [Unknown]
  - Shoshin beriberi [Recovered/Resolved]
  - Confusional state [Unknown]
